FAERS Safety Report 7204693-5 (Version None)
Quarter: 2010Q4

REPORT INFORMATION
  Report Type: 
  Country: None (occurrence: None)
  Receive Date: 20101230
  Receipt Date: 20101220
  Transmission Date: 20110411
  Serious: Yes (Other)
  Sender: FDA-Public Use
  Company Number: FR-JNJFOC-20101207345

PATIENT
  Age: 47 Year
  Sex: Male

DRUGS (3)
  1. REMICADE [Suspect]
     Indication: ANKYLOSING SPONDYLITIS
     Dosage: 2 INFUSIONS; DATES UNSPECIFIED
     Route: 042
  2. REMICADE [Suspect]
     Dosage: THIRD INFUSION
     Route: 042
  3. ANALGESIC MEDICATION NOS [Concomitant]

REACTIONS (7)
  - CHEST PAIN [None]
  - FATIGUE [None]
  - INFUSION RELATED REACTION [None]
  - MUSCLE CONTRACTURE [None]
  - MUSCLE SPASMS [None]
  - MYALGIA [None]
  - SENSORY DISTURBANCE [None]
